FAERS Safety Report 14228583 (Version 1)
Quarter: 2017Q4

REPORT INFORMATION
  Report Type: Spontaneous
  Country: US (occurrence: None)
  Receive Date: 20171124
  Receipt Date: 20171124
  Transmission Date: 20180321
  Serious: No
  Sender: FDA-Public Use
  Company Number: None

PATIENT
  Sex: Female

DRUGS (1)
  1. DUPIXENT [Suspect]
     Active Substance: DUPILUMAB
     Indication: DERMATITIS
     Dosage: DOSE AMOUNT - 600MG / 300MG?FREQUENCY - DAY 1 / DAY 15
     Route: 058
     Dates: start: 201709, end: 201709

REACTIONS (3)
  - Burning sensation [None]
  - Pain [None]
  - Rash [None]
